FAERS Safety Report 7979856-1 (Version None)
Quarter: 2011Q4

REPORT INFORMATION
  Report Type: 
  Country: None (occurrence: None)
  Receive Date: 20111214
  Receipt Date: 20111208
  Transmission Date: 20120403
  Serious: Yes (Hospitalization, Other)
  Sender: FDA-Public Use
  Company Number: US-AMGEN-USASP2011065383

PATIENT
  Age: 65 Year
  Sex: Male

DRUGS (1)
  1. ENBREL [Suspect]
     Indication: RHEUMATOID ARTHRITIS
     Dosage: UNK
     Dates: start: 20010101

REACTIONS (7)
  - PAIN [None]
  - DYSPNOEA [None]
  - CARDIAC DISORDER [None]
  - CARDIAC VALVE DISEASE [None]
  - WEIGHT INCREASED [None]
  - HEART DISEASE CONGENITAL [None]
  - MOBILITY DECREASED [None]
